FAERS Safety Report 23307027 (Version 1)
Quarter: 2023Q4

REPORT INFORMATION
  Report Type: Spontaneous
  Country: US (occurrence: US)
  Receive Date: 20231218
  Receipt Date: 20231218
  Transmission Date: 20240110
  Serious: No
  Sender: FDA-Public Use
  Company Number: US-RECKITT BENCKISER HEALTHCARE INT LIMITED-RB-087207-2023

PATIENT
  Age: 4 Year
  Sex: Male
  Weight: 15.91 kg

DRUGS (1)
  1. DELSYM [Suspect]
     Active Substance: DEXTROMETHORPHAN
     Indication: Cough
     Dosage: PATIENT TOOK 2.5 ML
     Route: 048
     Dates: start: 20230222

REACTIONS (1)
  - Accidental exposure to product by child [Unknown]
